FAERS Safety Report 9466608 (Version 1)
Quarter: 2013Q3

REPORT INFORMATION
  Report Type: Spontaneous
  Country: DE (occurrence: DE)
  Receive Date: 20130820
  Receipt Date: 20130820
  Transmission Date: 20140515
  Serious: Yes (Other)
  Sender: FDA-Public Use
  Company Number: PHHY2013DE089251

PATIENT
  Age: 34 Year
  Sex: Female

DRUGS (4)
  1. OPIPRAMOL [Suspect]
     Indication: DEPRESSION
     Dosage: 200 MG/DAY
  2. OPIPRAMOL [Suspect]
     Dosage: 100 MG/DAY
  3. DOXEPIN [Suspect]
     Indication: DEPRESSION
     Dosage: 50 MG/DAY
     Route: 048
  4. FOLIC ACID [Concomitant]
     Dosage: UNK UKN, UNK

REACTIONS (1)
  - Abortion late [Recovered/Resolved]
